FAERS Safety Report 23565512 (Version 1)
Quarter: 2024Q1

REPORT INFORMATION
  Report Type: Report from Study
  Country: US (occurrence: US)
  Receive Date: 20240226
  Receipt Date: 20240226
  Transmission Date: 20240410
  Serious: Yes (Other)
  Sender: FDA-Public Use
  Company Number: US-ALNYLAM PHARMACEUTICALS, INC.-ALN-2024-000210

PATIENT

DRUGS (2)
  1. GIVLAARI [Suspect]
     Active Substance: GIVOSIRAN SODIUM
     Indication: Porphyria acute
     Dosage: 183.25 MILLIGRAM, MONTHLY
     Route: 058
     Dates: start: 20200926
  2. GIVLAARI [Suspect]
     Active Substance: GIVOSIRAN SODIUM
     Dosage: UNK
     Route: 065
     Dates: start: 20201007

REACTIONS (10)
  - Dementia [Unknown]
  - Amnesia [Unknown]
  - Muscle spasms [Unknown]
  - Malaise [Unknown]
  - Therapy interrupted [Unknown]
  - Pain [Unknown]
  - Oedema peripheral [Unknown]
  - Cough [Unknown]
  - Skin lesion [Unknown]
  - Condition aggravated [Unknown]

NARRATIVE: CASE EVENT DATE: 20240101
